FAERS Safety Report 9468942 (Version 1)
Quarter: 2013Q3

REPORT INFORMATION
  Report Type: Spontaneous
  Country: US (occurrence: US)
  Receive Date: 20130821
  Receipt Date: 20130821
  Transmission Date: 20140515
  Serious: No
  Sender: FDA-Public Use
  Company Number: US-009507513-1308USA007148

PATIENT
  Age: 40 Year
  Sex: Female

DRUGS (5)
  1. SAPHRIS [Suspect]
     Dosage: 1 DF, HS
     Route: 060
     Dates: start: 20130711
  2. WELLBUTRIN XL [Concomitant]
  3. LEVOTHYROXINE SODIUM [Concomitant]
     Route: 048
  4. TRAZODONE HYDROCHLORIDE [Concomitant]
  5. TRILEPTAL [Concomitant]

REACTIONS (4)
  - Anxiety [Not Recovered/Not Resolved]
  - Drug administration error [Unknown]
  - Inappropriate schedule of drug administration [Unknown]
  - Product taste abnormal [Unknown]
